FAERS Safety Report 5832986-2 (Version None)
Quarter: 2008Q3

REPORT INFORMATION
  Report Type: 
  Country: None (occurrence: None)
  Receive Date: 20080804
  Receipt Date: 20080729
  Transmission Date: 20090109
  Serious: Yes (Other)
  Sender: FDA-Public Use
  Company Number: US-MERCK-0807USA05544

PATIENT
  Age: 81 Year
  Sex: Male

DRUGS (3)
  1. ZOCOR [Suspect]
     Indication: BLOOD CHOLESTEROL INCREASED
     Route: 048
     Dates: start: 20070101
  2. REQUIP [Concomitant]
     Route: 065
  3. FLOMAX [Concomitant]
     Route: 065

REACTIONS (1)
  - DEAFNESS [None]
